FAERS Safety Report 26144879 (Version 1)
Quarter: 2025Q4

REPORT INFORMATION
  Report Type: Spontaneous
  Country: EU (occurrence: EU)
  Receive Date: 20251211
  Receipt Date: 20251211
  Transmission Date: 20260118
  Serious: Yes (Other)
  Sender: SANDOZ
  Company Number: EU-SANDOZ-SDZ2025AT093602

PATIENT
  Age: 26 Year
  Sex: Male

DRUGS (7)
  1. CYCLOPHOSPHAMIDE [Suspect]
     Active Substance: CYCLOPHOSPHAMIDE
     Indication: Diffuse large B-cell lymphoma stage I
     Dosage: UNK, (6 CYCLES ADMINISTERED IN TOTAL R2-CHOP THERAPY)
     Route: 065
  2. DOXORUBICIN HYDROCHLORIDE [Suspect]
     Active Substance: DOXORUBICIN HYDROCHLORIDE
     Indication: Diffuse large B-cell lymphoma stage I
     Dosage: UNK, ( 6 CYCLES ADMINISTERED IN TOTAL R2-CHOP THERAPY)
     Route: 065
  3. LENALIDOMIDE [Suspect]
     Active Substance: LENALIDOMIDE
     Indication: Diffuse large B-cell lymphoma stage I
     Dosage: UNK, (6 CYCLES ADMINISTERED IN TOTAL R2-CHOP THERAPY)
     Route: 065
  4. METHOTREXATE [Suspect]
     Active Substance: METHOTREXATE
     Indication: Prophylaxis
     Dosage: UNK, (2 CYCLES ADMINISTERED (HIGH DOSE))
     Route: 065
  5. PREDNISONE [Suspect]
     Active Substance: PREDNISONE
     Indication: Diffuse large B-cell lymphoma stage I
     Dosage: UNK, ( 6 CYCLES ADMINISTERED IN TOTAL R2-CHOP THERAPY)
     Route: 065
  6. RITUXIMAB [Suspect]
     Active Substance: RITUXIMAB
     Indication: Diffuse large B-cell lymphoma stage I
     Dosage: UNK, (6 CYCLES ADMINISTERED IN TOTAL R2-CHOP THERAPY)
     Route: 065
  7. VINCRISTINE [Suspect]
     Active Substance: VINCRISTINE
     Indication: Diffuse large B-cell lymphoma stage I
     Dosage: UNK, ( 6 CYCLES ADMINISTERED IN TOTAL R2-CHOP THERAPY)
     Route: 065

REACTIONS (1)
  - Disease recurrence [Unknown]
